FAERS Safety Report 9733377 (Version 3)
Quarter: 2014Q1

REPORT INFORMATION
  Report Type: Spontaneous
  Country: US (occurrence: US)
  Receive Date: 20131205
  Receipt Date: 20140326
  Transmission Date: 20141002
  Serious: Yes (Hospitalization, Other)
  Sender: FDA-Public Use
  Company Number: US-UCBSA-104507

PATIENT
  Age: 44 Year
  Sex: Male
  Weight: 65.7 kg

DRUGS (2)
  1. CIMZIA [Suspect]
     Indication: CROHN^S DISEASE
     Dosage: EXPIRY DATE FOR THE DOSE TAKEN ON 04-MAR-2014 IS 27-DEC-2014
     Dates: start: 201110
  2. LEVETIRACETAM GENERIC [Suspect]
     Indication: CONVULSION

REACTIONS (2)
  - Bone disorder [Unknown]
  - Dizziness [Unknown]
